FAERS Safety Report 17179316 (Version 1)
Quarter: 2019Q4

REPORT INFORMATION
  Report Type: Spontaneous
  Country: JP (occurrence: JP)
  Receive Date: 20191219
  Receipt Date: 20191219
  Transmission Date: 20200122
  Serious: Yes (Death)
  Sender: FDA-Public Use
  Company Number: JP-ROCHE-2501938

PATIENT
  Age: 9 Decade
  Sex: Male

DRUGS (4)
  1. CALSED [Concomitant]
     Active Substance: AMRUBICIN HYDROCHLORIDE
     Indication: SMALL CELL LUNG CANCER
     Dosage: DOSAGE IS UNCERTAIN.
     Route: 041
  2. ETOPOSIDE. [Concomitant]
     Active Substance: ETOPOSIDE
     Indication: SMALL CELL LUNG CANCER
     Dosage: DOSAGE IS UNCERTAIN.
     Route: 041
  3. TECENTRIQ [Suspect]
     Active Substance: ATEZOLIZUMAB
     Indication: SMALL CELL LUNG CANCER
     Route: 041
     Dates: start: 20191001, end: 20191112
  4. CARBOPLATIN. [Concomitant]
     Active Substance: CARBOPLATIN
     Indication: SMALL CELL LUNG CANCER
     Dosage: DOSAGE IS UNCERTAIN.
     Route: 041

REACTIONS (1)
  - Disease progression [Fatal]

NARRATIVE: CASE EVENT DATE: 20191210
